FAERS Safety Report 6288052-8 (Version None)
Quarter: 2009Q3

REPORT INFORMATION
  Report Type: 
  Country: None (occurrence: None)
  Receive Date: 20090729
  Receipt Date: 20090717
  Transmission Date: 20100115
  Serious: No
  Sender: FDA-Public Use
  Company Number: PHEH2009US07406

PATIENT
  Age: 32 Year
  Sex: Female

DRUGS (2)
  1. SANDOSTATIN LAR [Suspect]
     Indication: ACROMEGALY
     Dosage: 20 MG, UNK
     Dates: start: 20081001
  2. SANDOSTATIN LAR [Suspect]
     Dosage: 30 MG, QMO
     Route: 030
     Dates: start: 20090501

REACTIONS (4)
  - ARTHRALGIA [None]
  - FATIGUE [None]
  - GASTRIC DISORDER [None]
  - MYALGIA [None]
